FAERS Safety Report 24422701 (Version 2)
Quarter: 2024Q4

REPORT INFORMATION
  Report Type: Spontaneous
  Country: PK (occurrence: PK)
  Receive Date: 20241010
  Receipt Date: 20241206
  Transmission Date: 20250115
  Serious: Yes (Other)
  Sender: PFIZER
  Company Number: PK-PFIZER INC-PV202400130261

PATIENT
  Age: 82 Year
  Sex: Male

DRUGS (9)
  1. RUXIENCE [Suspect]
     Active Substance: RITUXIMAB-PVVR
     Indication: Rheumatoid arthritis
     Dosage: 1 G
     Route: 042
     Dates: start: 20240407, end: 20240422
  2. RUXIENCE [Suspect]
     Active Substance: RITUXIMAB-PVVR
     Dosage: 500 MG AFTER 6 MONTHS OF 1ST THERAPY (RESTARTED)
     Route: 042
  3. LEFLUNOMIDE [Concomitant]
     Active Substance: LEFLUNOMIDE
     Dosage: 20 MG IN MORNING FOR 20 DAYS
  4. RAPICORT [HYDROCORTISONE SODIUM SUCCINATE] [Concomitant]
     Dosage: 5 MG, MORNING
  5. PANADOL [Concomitant]
     Active Substance: ACETAMINOPHEN
     Dosage: UNK, AT NIGHT FOR 20 DAYS
  6. ESCITALOPRAM OXALATE [Concomitant]
     Active Substance: ESCITALOPRAM OXALATE
     Dosage: 5 MG, MORNING
  7. MAXFLOW D [Concomitant]
     Dosage: 4/0.5 MG EVENING
  8. HEMOFER [FERRIC CHLORIDE] [Concomitant]
     Dosage: UNK, MORNING
  9. HEMOFER [FERRIC CHLORIDE] [Concomitant]
     Dosage: UNK AT NIGHT FOR 20 DAYS

REACTIONS (3)
  - Azotaemia [Unknown]
  - Red blood cell sedimentation rate increased [Unknown]
  - Off label use [Unknown]
